FAERS Safety Report 18588340 (Version 1)
Quarter: 2020Q4

REPORT INFORMATION
  Report Type: Spontaneous
  Country: US (occurrence: US)
  Receive Date: 20201207
  Receipt Date: 20201207
  Transmission Date: 20210114
  Serious: No
  Sender: FDA-Public Use
  Company Number: US-JUBILANT CADISTA PHARMACEUTICALS-2020JUB00003

PATIENT
  Age: 48 Year
  Sex: Female
  Weight: 126.98 kg

DRUGS (3)
  1. METHYLPREDNISOLONE. [Suspect]
     Active Substance: METHYLPREDNISOLONE
     Dosage: DAY 3: 1 TABLET BEFORE BREAKFAST AND 1 TABLET AFTER LUNCH, AFTER SUPPER, AND AT BEDTIME.
     Route: 048
     Dates: start: 20200102, end: 20200102
  2. METHYLPREDNISOLONE. [Suspect]
     Active Substance: METHYLPREDNISOLONE
     Dosage: DAY 2: 1 TABLET BEFORE BREAKFAST, 1 TABLET AFTER LUNCH AND SUPPER, AND 2 TABLETS AT BEDTIME
     Route: 048
     Dates: start: 20200101, end: 20200101
  3. METHYLPREDNISOLONE. [Suspect]
     Active Substance: METHYLPREDNISOLONE
     Indication: BRONCHITIS
     Dosage: DAY 1: 2 TABLETS BEFORE BREAKFAST, 1 TABLET AFTER LUNCH AND SUPPER, AND 2 TABLETS AT BEDTIME
     Route: 048
     Dates: start: 20191231, end: 20191231

REACTIONS (9)
  - Vomiting [Recovered/Resolved]
  - Insomnia [Not Recovered/Not Resolved]
  - Cough [Not Recovered/Not Resolved]
  - Wheezing [Recovered/Resolved]
  - Diarrhoea [Not Recovered/Not Resolved]
  - Pain [Recovered/Resolved]
  - Malaise [Not Recovered/Not Resolved]
  - Musculoskeletal chest pain [Recovered/Resolved]
  - Skin discolouration [Recovered/Resolved]

NARRATIVE: CASE EVENT DATE: 202001
